FAERS Safety Report 9281160 (Version 2)
Quarter: 2013Q2

REPORT INFORMATION
  Report Type: Report from Study
  Country: US (occurrence: US)
  Receive Date: 20130509
  Receipt Date: 20130607
  Transmission Date: 20140414
  Serious: Yes (Other)
  Sender: FDA-Public Use
  Company Number: PHEH2012US011442

PATIENT
  Sex: Female

DRUGS (8)
  1. GLEEVEC [Suspect]
     Indication: GASTROINTESTINAL STROMAL TUMOUR
     Dosage: 400 MG, DAILY
     Route: 048
     Dates: start: 20120601
  2. HYDROCODONE BITARTRATE AND IBUPROFEN [Concomitant]
  3. FLONASE [Concomitant]
     Dosage: 0.05 %, UNK
     Route: 045
  4. VENTOLIN HFA [Concomitant]
     Dosage: 90 UG, UNK
  5. ALBUTEROL [Concomitant]
     Dosage: 0.083 %, UNK
  6. CELEXA [Concomitant]
     Dosage: UNK UKN, UNK
  7. SYMBICORT [Concomitant]
     Dosage: 4.5 UG, UNK
  8. LORTAB [Concomitant]
     Dosage: UNK UKN, UNK

REACTIONS (6)
  - Asthma [Unknown]
  - Concomitant disease progression [Unknown]
  - Muscle spasms [Unknown]
  - Headache [Unknown]
  - Dyspnoea exertional [Unknown]
  - Anxiety [Unknown]
